FAERS Safety Report 5096161-4 (Version None)
Quarter: 2006Q3

REPORT INFORMATION
  Report Type: 
  Country: None (occurrence: None)
  Receive Date: 20060831
  Receipt Date: 20060821
  Transmission Date: 20061208
  Serious: Yes (Other)
  Sender: FDA-Public Use
  Company Number: S05-USA-04816-02

PATIENT
  Sex: Male
  Weight: 3.66 kg

DRUGS (5)
  1. LEXAPRO [Suspect]
     Dosage: 20 MG QD TRANSPLACENTAL
     Route: 064
     Dates: start: 20051010, end: 20051103
  2. LEXAPRO [Suspect]
     Dates: start: 20051104, end: 20051107
  3. LAMICTAL [Concomitant]
  4. MAGNESIUM [Concomitant]
  5. EPIDURAL [Concomitant]

REACTIONS (6)
  - BLOOD BILIRUBIN INCREASED [None]
  - DRUG EXPOSURE DURING PREGNANCY [None]
  - JAUNDICE NEONATAL [None]
  - MATERNAL CONDITION AFFECTING FOETUS [None]
  - NEONATAL DISORDER [None]
  - WEIGHT DECREASE NEONATAL [None]
